FAERS Safety Report 9249111 (Version 1)
Quarter: 2013Q2

REPORT INFORMATION
  Report Type: Spontaneous
  Country: US (occurrence: US)
  Receive Date: 20130423
  Receipt Date: 20130423
  Transmission Date: 20140414
  Serious: No
  Sender: FDA-Public Use
  Company Number: US-ASTRAZENECA-2012SE81963

PATIENT
  Age: 58 Year
  Sex: Female

DRUGS (2)
  1. SYMBICORT PMDI [Suspect]
     Dosage: 160/4.5MCG, UNKNOWN FREQUENCY
     Route: 055
  2. NEXIUM [Suspect]
     Route: 048

REACTIONS (1)
  - Dyspnoea [Unknown]
